FAERS Safety Report 5894156-1 (Version None)
Quarter: 2008Q3

REPORT INFORMATION
  Report Type: 
  Country: None (occurrence: None)
  Receive Date: 20080923
  Receipt Date: 20080207
  Transmission Date: 20090109
  Serious: No
  Sender: FDA-Public Use
  Company Number: US-ASTRAZENECA-2008UW02622

PATIENT
  Age: 45 Year
  Sex: Female
  Weight: 65.8 kg

DRUGS (3)
  1. SEROQUEL [Suspect]
     Indication: DEPRESSION
     Route: 048
     Dates: start: 20080204
  2. WELLBUTRIN [Concomitant]
  3. SPRINTEC [Concomitant]

REACTIONS (3)
  - ANXIETY [None]
  - FORMICATION [None]
  - PALPITATIONS [None]
